FAERS Safety Report 10250201 (Version 2)
Quarter: 2014Q2

REPORT INFORMATION
  Report Type: Spontaneous
  Country: US (occurrence: US)
  Receive Date: 20140620
  Receipt Date: 20140620
  Transmission Date: 20141212
  Serious: Yes (Life-Threatening, Hospitalization, Other)
  Sender: FDA-Public Use
  Company Number: US-SA-A03200903350

PATIENT
  Age: 72 Year
  Sex: Female

DRUGS (6)
  1. PLAVIX [Suspect]
     Indication: PRODUCT USED FOR UNKNOWN INDICATION
     Dosage: UNIT DOSE: 75 MG
     Route: 048
     Dates: start: 200812
  2. PLAVIX [Suspect]
     Indication: PRODUCT USED FOR UNKNOWN INDICATION
     Dosage: UNIT DOSE: 75 MG
     Route: 048
     Dates: start: 20090108, end: 200901
  3. PLAVIX [Suspect]
     Indication: PRODUCT USED FOR UNKNOWN INDICATION
     Dosage: UNIT DOSE: 1 DF
     Route: 048
     Dates: start: 20090515, end: 200905
  4. TRIAMTERENE [Concomitant]
     Indication: PRODUCT USED FOR UNKNOWN INDICATION
     Dosage: UNIT DOSE: 37.5 MG
     Route: 048
  5. LOVASTATIN [Concomitant]
     Indication: PRODUCT USED FOR UNKNOWN INDICATION
     Dosage: UNIT DOSE: 40 MG
     Route: 048
  6. MICARDIS [Concomitant]
     Indication: PRODUCT USED FOR UNKNOWN INDICATION
     Dosage: UNIT DOSE: 20 MG
     Route: 048
     Dates: start: 200905

REACTIONS (7)
  - Cerebral haemorrhage [Unknown]
  - Brain injury [Unknown]
  - Multiple injuries [Unknown]
  - Hypertension [Unknown]
  - Tinnitus [Unknown]
  - Facial pain [Unknown]
  - Ulcer haemorrhage [Unknown]
